FAERS Safety Report 13115850 (Version 1)
Quarter: 2017Q1

REPORT INFORMATION
  Report Type: Spontaneous
  Country: US (occurrence: US)
  Receive Date: 20170115
  Receipt Date: 20170115
  Transmission Date: 20170428
  Serious: Yes (Hospitalization)
  Sender: FDA-Public Use
  Company Number: US-MALLINCKRODT-T201606629

PATIENT
  Age: 45 Year
  Sex: Male

DRUGS (8)
  1. KEFLEX [Concomitant]
     Active Substance: CEPHALEXIN
  2. MIRALAX [Concomitant]
     Active Substance: POLYETHYLENE GLYCOL 3350
     Indication: SUPPLEMENTATION THERAPY
  3. KEPPRA [Concomitant]
     Active Substance: LEVETIRACETAM
  4. COLACE [Concomitant]
     Active Substance: DOCUSATE SODIUM
  5. TYLENOL [Concomitant]
     Active Substance: ACETAMINOPHEN
  6. GABLOFEN [Suspect]
     Active Substance: BACLOFEN
     Indication: MUSCLE SPASTICITY
     Dosage: 280 ?G, QD
     Route: 037
  7. GABLOFEN [Suspect]
     Active Substance: BACLOFEN
     Dosage: 100 ?G, UNK
     Route: 037
  8. GABLOFEN [Suspect]
     Active Substance: BACLOFEN
     Dosage: 476 ?G, QD
     Route: 037

REACTIONS (8)
  - Withdrawal syndrome [Recovered/Resolved]
  - Hypophagia [Recovered/Resolved]
  - Hypertension [Recovered/Resolved]
  - Tachycardia [Recovered/Resolved]
  - Rhabdomyolysis [Recovered/Resolved]
  - Vomiting [Recovered/Resolved]
  - Tremor [Recovered/Resolved]
  - Device issue [Recovered/Resolved]

NARRATIVE: CASE EVENT DATE: 20160802
